FAERS Safety Report 5298923-7 (Version None)
Quarter: 2007Q2

REPORT INFORMATION
  Report Type: 
  Country: None (occurrence: None)
  Receive Date: 20070417
  Receipt Date: 20070404
  Transmission Date: 20071010
  Serious: Yes (Other)
  Sender: FDA-Public Use
  Company Number: PHEH2007US04215

PATIENT
  Age: 59 Year
  Sex: Female

DRUGS (1)
  1. ZELNORM [Suspect]
     Indication: IRRITABLE BOWEL SYNDROME
     Dosage: 6 MG, BID
     Dates: start: 20050101, end: 20070403

REACTIONS (33)
  - ABDOMINAL DISTENSION [None]
  - ABDOMINAL PAIN [None]
  - ALOPECIA [None]
  - AMNESIA [None]
  - BIOPSY LIVER ABNORMAL [None]
  - BLOOD CHROMOGRANIN A INCREASED [None]
  - CARCINOID TUMOUR [None]
  - CATARACT [None]
  - CHOLECYSTECTOMY [None]
  - CONDITION AGGRAVATED [None]
  - CYSTITIS [None]
  - DISTURBANCE IN ATTENTION [None]
  - DIZZINESS [None]
  - DYSPNOEA [None]
  - FATIGUE [None]
  - GAIT DISTURBANCE [None]
  - GALLBLADDER CANCER [None]
  - HEPATIC ADENOMA [None]
  - HOT FLUSH [None]
  - MUSCLE RIGIDITY [None]
  - MUSCLE SPASMS [None]
  - NAUSEA [None]
  - NEOPLASM SKIN [None]
  - NEPHROLITHIASIS [None]
  - PAIN [None]
  - PARAESTHESIA [None]
  - PRURITUS GENERALISED [None]
  - RESTLESSNESS [None]
  - SWELLING [None]
  - SYNCOPE [None]
  - TREMOR [None]
  - VISUAL DISTURBANCE [None]
  - WEIGHT FLUCTUATION [None]
